FAERS Safety Report 6708578-X (Version None)
Quarter: 2010Q2

REPORT INFORMATION
  Report Type: 
  Country: None (occurrence: None)
  Receive Date: 20100503
  Receipt Date: 20100426
  Transmission Date: 20101027
  Serious: Yes (Death, Life-Threatening, Other)
  Sender: FDA-Public Use
  Company Number: US-BAXTER-2010BH010978

PATIENT
  Age: 41 Year
  Sex: Male

DRUGS (5)
  1. HEPARIN [Suspect]
     Indication: DRUG USE FOR UNKNOWN INDICATION
     Route: 042
  2. ASPIRIN [Concomitant]
     Indication: CARDIOVASCULAR EVENT PROPHYLAXIS
     Route: 048
  3. NITRATES [Concomitant]
     Indication: DRUG USE FOR UNKNOWN INDICATION
     Route: 065
  4. BETA-BLOCKERS [Concomitant]
     Indication: DRUG USE FOR UNKNOWN INDICATION
     Route: 065
  5. PROTON PUMP INHIBITOR [Concomitant]
     Indication: DRUG USE FOR UNKNOWN INDICATION
     Route: 065

REACTIONS (2)
  - CARDIAC ARREST [None]
  - HEPARIN-INDUCED THROMBOCYTOPENIA [None]
